FAERS Safety Report 9827807 (Version 2)
Quarter: 2014Q1

REPORT INFORMATION
  Report Type: Report from Study
  Country: DE (occurrence: DE)
  Receive Date: 20140117
  Receipt Date: 20140117
  Transmission Date: 20141002
  Serious: Yes (Other)
  Sender: FDA-Public Use
  Company Number: DE-BRISTOL-MYERS SQUIBB COMPANY-16725202

PATIENT
  Age: 60 Year
  Sex: Male

DRUGS (8)
  1. ABATACEPT [Suspect]
     Indication: RHEUMATOID ARTHRITIS
     Dosage: NOV2008-JAN10, MAY10-FEB2011
     Dates: start: 200811
  2. CYCLOSPORIN A [Interacting]
     Indication: RHEUMATOID ARTHRITIS
     Dosage: SEP09-MAR11, MAY11-UNK?200MG FROM JAN2010?50MG 2/D:JUL09, 75MG 2/D:SEP09, 100MG 2/D: JAN10-ONG
     Dates: start: 200811
  3. QUENSYL [Interacting]
     Indication: RHEUMATOID ARTHRITIS
     Dates: start: 200811
  4. ALBENDAZOLE [Interacting]
  5. DECORTIN [Interacting]
     Indication: RHEUMATOID ARTHRITIS
     Dosage: 1X1
  6. ALFUZOSIN [Concomitant]
     Dosage: 1X1
  7. L-THYROXINE [Concomitant]
     Dosage: 1X1
  8. VITAMIN B12 [Concomitant]

REACTIONS (2)
  - Echinococciasis [Not Recovered/Not Resolved]
  - Drug interaction [Unknown]
